FAERS Safety Report 21954959 (Version 2)
Quarter: 2023Q1

REPORT INFORMATION
  Report Type: Spontaneous
  Country: US (occurrence: None)
  Receive Date: 20230206
  Receipt Date: 20230222
  Transmission Date: 20230417
  Serious: No
  Sender: FDA-Public Use
  Company Number: 2023A018437

PATIENT
  Sex: Female
  Weight: 61.2 kg

DRUGS (1)
  1. BUDESONIDE\FORMOTEROL\GLYCOPYRRONIUM [Suspect]
     Active Substance: BUDESONIDE\FORMOTEROL\GLYCOPYRRONIUM
     Indication: Dyspnoea
     Route: 055

REACTIONS (5)
  - Dysphonia [Unknown]
  - Cough [Unknown]
  - Throat clearing [Unknown]
  - Off label use [Unknown]
  - Drug ineffective [Unknown]
